FAERS Safety Report 9788443 (Version 1)
Quarter: 2013Q4

REPORT INFORMATION
  Report Type: Spontaneous
  Country: CL (occurrence: CL)
  Receive Date: 20131230
  Receipt Date: 20131230
  Transmission Date: 20140711
  Serious: Yes (Other)
  Sender: FDA-Public Use
  Company Number: CL-PFIZER INC-2013370032

PATIENT
  Age: 35 Year
  Sex: Male

DRUGS (10)
  1. XALATAN [Suspect]
     Indication: GLAUCOMA
     Dosage: 1 DF, 1X/DAY (1 DROP IN THE EVENING ON EACH EYE)
     Route: 047
     Dates: start: 2005
  2. TILDIEM [Concomitant]
     Dosage: UNK
  3. CARVEDILOL [Concomitant]
     Dosage: UNK
  4. OMEPRAZOLE [Concomitant]
     Dosage: UNK
  5. METHOCLOPRAMIDE [Concomitant]
     Dosage: UNK
  6. CALCIUM [Concomitant]
     Dosage: UNK
  7. MULCATEL [Concomitant]
     Dosage: UNK
  8. CREON [Concomitant]
     Dosage: UNK
  9. ARIPIPRAZOLE [Concomitant]
     Dosage: UNK
  10. HUMALOG [Concomitant]
     Dosage: UNK

REACTIONS (3)
  - Blindness [Not Recovered/Not Resolved]
  - Dementia Alzheimer^s type [Not Recovered/Not Resolved]
  - Walking disability [Not Recovered/Not Resolved]
